FAERS Safety Report 4786783-X (Version None)
Quarter: 2005Q4

REPORT INFORMATION
  Report Type: 
  Country: None (occurrence: None)
  Receive Date: 20051004
  Receipt Date: 20050927
  Transmission Date: 20060501
  Serious: Yes (Other)
  Sender: FDA-Public Use
  Company Number: US-JNJFOC-20050906648

PATIENT
  Sex: Female
  Weight: 108.86 kg

DRUGS (6)
  1. ULTRAM [Suspect]
     Indication: FIBROMYALGIA
     Route: 048
     Dates: start: 19970101
  2. ULTRAM [Suspect]
     Indication: NECK PAIN
     Dosage: 2-3 TABLETS PER DAY
     Route: 048
     Dates: start: 19970101
  3. SYNTHROID [Concomitant]
     Indication: HYPOTHYROIDISM
  4. PREMARIN [Concomitant]
     Indication: HORMONE REPLACEMENT THERAPY
  5. PEPCID AC [Concomitant]
  6. LEXAPRO [Concomitant]
     Indication: DEPRESSION

REACTIONS (2)
  - GLAUCOMA [None]
  - INTRAOCULAR PRESSURE INCREASED [None]
